FAERS Safety Report 19072978 (Version 3)
Quarter: 2021Q2

REPORT INFORMATION
  Report Type: Spontaneous
  Country: US (occurrence: US)
  Receive Date: 20210330
  Receipt Date: 20210615
  Transmission Date: 20210717
  Serious: No
  Sender: FDA-Public Use
  Company Number: US-BRISTOL-MYERS SQUIBB COMPANY-BMS-2021-023405

PATIENT
  Age: 81 Year
  Sex: Female
  Weight: 68 kg

DRUGS (3)
  1. HYDREA [Suspect]
     Active Substance: HYDROXYUREA
     Indication: ESSENTIAL THROMBOCYTHAEMIA
     Dosage: UNK UNK, BID
     Route: 048
  2. HYDREA [Suspect]
     Active Substance: HYDROXYUREA
     Indication: ESSENTIAL THROMBOCYTHAEMIA
     Dosage: (2) CAPSULES EVERY OTHER DAY
     Route: 048
  3. HYDREA [Suspect]
     Active Substance: HYDROXYUREA
     Dosage: (2) 500 MG CAPSULES DAILY
     Route: 048

REACTIONS (7)
  - Malaise [Unknown]
  - Intentional product use issue [Unknown]
  - Fatigue [Unknown]
  - Pruritus [Unknown]
  - Peripheral swelling [Unknown]
  - Actinic keratosis [Unknown]
  - Abdominal distension [Unknown]
